FAERS Safety Report 6370924-7 (Version None)
Quarter: 2009Q3

REPORT INFORMATION
  Report Type: 
  Country: None (occurrence: None)
  Receive Date: 20090923
  Receipt Date: 20070924
  Transmission Date: 20100115
  Serious: No
  Sender: FDA-Public Use
  Company Number: US-ASTRAZENECA-2006UW23353

PATIENT
  Age: 21622 Day
  Sex: Female
  Weight: 94.8 kg

DRUGS (33)
  1. SEROQUEL [Suspect]
     Indication: DEPRESSION
     Dosage: 25 MG- 100 MG
     Route: 048
     Dates: start: 20020620
  2. SEROQUEL [Suspect]
     Indication: PERSONALITY DISORDER
     Dosage: 25 MG- 100 MG
     Route: 048
     Dates: start: 20020620
  3. SEROQUEL [Suspect]
     Indication: AGITATION
     Dosage: 25 MG- 100 MG
     Route: 048
     Dates: start: 20020620
  4. SEROQUEL [Suspect]
     Indication: ANXIETY
     Dosage: 25 MG- 100 MG
     Route: 048
     Dates: start: 20020620
  5. SEROQUEL [Suspect]
     Indication: RESTLESSNESS
     Dosage: 25 MG- 100 MG
     Route: 048
     Dates: start: 20020620
  6. SEROQUEL [Suspect]
     Route: 048
  7. SEROQUEL [Suspect]
     Route: 048
  8. SEROQUEL [Suspect]
     Route: 048
  9. SEROQUEL [Suspect]
     Route: 048
  10. SEROQUEL [Suspect]
     Route: 048
  11. ZYPREXA [Suspect]
     Dosage: 5 - 10 MG
     Route: 048
     Dates: start: 20020926, end: 20040101
  12. INSULIN [Concomitant]
  13. DEPAKOTE [Concomitant]
  14. EFFEXOR [Concomitant]
  15. ABILIFY [Concomitant]
  16. XANAX [Concomitant]
  17. LORAZEPAM [Concomitant]
  18. TRAZODONE [Concomitant]
  19. RISPERDAL [Concomitant]
  20. WELLBUTRIN [Concomitant]
  21. TRILEPTAL [Concomitant]
  22. KLONOPIN [Concomitant]
  23. CELEBREX [Concomitant]
  24. PAXIL [Concomitant]
  25. ZOLOFT [Concomitant]
  26. PREDNISONE [Concomitant]
  27. DARVOCET [Concomitant]
  28. CARISOPRODOL [Concomitant]
  29. REMERON [Concomitant]
  30. ZANAFLEX [Concomitant]
  31. PROZAC [Concomitant]
  32. ENDACOF [Concomitant]
  33. DOXEPIN HCL [Concomitant]

REACTIONS (4)
  - BLOOD GLUCOSE FLUCTUATION [None]
  - DIABETES MELLITUS [None]
  - PSYCHOTIC BEHAVIOUR [None]
  - TYPE 2 DIABETES MELLITUS [None]
